FAERS Safety Report 6802066-8 (Version None)
Quarter: 2010Q2

REPORT INFORMATION
  Report Type: 
  Country: None (occurrence: None)
  Receive Date: 20100629
  Receipt Date: 20071020
  Transmission Date: 20101027
  Serious: No
  Sender: FDA-Public Use
  Company Number: US-PFIZER INC-2007053528

PATIENT
  Sex: Male
  Weight: 170 kg

DRUGS (3)
  1. TIKOSYN [Suspect]
     Indication: ATRIAL FIBRILLATION
     Dates: start: 20060101
  2. ACCUPRIL [Concomitant]
  3. INDERAL LA [Concomitant]

REACTIONS (3)
  - ANXIETY [None]
  - DRUG ADMINISTRATION ERROR [None]
  - HEADACHE [None]
